FAERS Safety Report 24643822 (Version 2)
Quarter: 2024Q4

REPORT INFORMATION
  Report Type: Spontaneous
  Country: FR (occurrence: FR)
  Receive Date: 20241120
  Receipt Date: 20241202
  Transmission Date: 20250115
  Serious: Yes (Life-Threatening)
  Sender: GUERBET
  Company Number: FR-GUERBETG-FR-20240413

PATIENT
  Age: 83 Year
  Sex: Male

DRUGS (2)
  1. OPTIRAY 350 [Suspect]
     Active Substance: IOVERSOL
     Indication: Computerised tomogram abdomen
     Dates: start: 20241107, end: 20241107
  2. OPTIRAY 350 [Suspect]
     Active Substance: IOVERSOL
     Indication: Computerised tomogram thorax

REACTIONS (1)
  - Inadvertent injection air bubble [Recovering/Resolving]

NARRATIVE: CASE EVENT DATE: 20241107
